FAERS Safety Report 9538826 (Version 1)
Quarter: 2013Q2

REPORT INFORMATION
  Report Type: Spontaneous
  Country: US (occurrence: None)
  Receive Date: 20130517
  Receipt Date: 20130517
  Transmission Date: 20140414
  Serious: Yes (Hospitalization)
  Sender: FDA-Public Use
  Company Number: 2012PL000112

PATIENT
  Age: 31 Year
  Sex: Female

DRUGS (10)
  1. IMURAN (AZATHIOPRINE) [Suspect]
     Indication: CROHN^S DISEASE
     Dates: start: 201202, end: 201202
  2. HUMIRA [Suspect]
     Indication: CROHN^S DISEASE
  3. MESALAZINE [Concomitant]
  4. FLONASE [Concomitant]
  5. CETIRIZINE [Concomitant]
  6. RANITIDINE [Concomitant]
  7. BIFIDOBACTERIUM LACTIS [Concomitant]
  8. NORLESTRIN FE [Concomitant]
  9. PARACETAMOL [Concomitant]
  10. PREDNISONE [Concomitant]

REACTIONS (19)
  - Pancreatitis [None]
  - Clostridial infection [None]
  - Diarrhoea [None]
  - Dehydration [None]
  - Weight decreased [None]
  - Abdominal pain [None]
  - Pain [None]
  - Oral herpes [None]
  - Injection site haematoma [None]
  - Lymphadenopathy [None]
  - Crohn^s disease [None]
  - Injection site pain [None]
  - Lethargy [None]
  - Arthralgia [None]
  - Anxiety [None]
  - Panic attack [None]
  - Injection site haemorrhage [None]
  - Frequent bowel movements [None]
  - Haematochezia [None]
